FAERS Safety Report 6640788-2 (Version None)
Quarter: 2010Q1

REPORT INFORMATION
  Report Type: 
  Country: None (occurrence: None)
  Receive Date: 20100318
  Receipt Date: 20100308
  Transmission Date: 20100710
  Serious: Yes (Hospitalization)
  Sender: FDA-Public Use
  Company Number: IT-PFIZER INC-2006145400

PATIENT
  Age: 58 Year
  Sex: Male
  Weight: 83 kg

DRUGS (11)
  1. SUNITINIB MALATE [Suspect]
     Indication: METASTATIC RENAL CELL CARCINOMA
     Dosage: 37.5  MG, X/DAY
     Route: 048
     Dates: start: 20060403, end: 20061113
  2. CLEXANE [Concomitant]
     Indication: PROPHYLAXIS
     Dosage: UNK
     Route: 030
     Dates: start: 20061124
  3. LANSOPRAZOLE [Concomitant]
     Indication: PROPHYLAXIS
     Route: 048
     Dates: start: 20060418
  4. TRAMADOL HYDROCHLORIDE [Concomitant]
     Indication: PROPHYLAXIS
     Route: 048
     Dates: start: 20060426
  5. DOXAZOSIN MESYLATE [Concomitant]
     Indication: HYPERTENSION
     Route: 048
     Dates: start: 20050729
  6. METHYLPREDNISOLONE [Concomitant]
     Indication: PROPHYLAXIS
     Route: 048
     Dates: start: 20060907
  7. TETRACOSACTIDE [Concomitant]
     Indication: PROPHYLAXIS
     Route: 030
     Dates: start: 20060515
  8. DALTEPARIN SODIUM [Concomitant]
     Indication: PROPHYLAXIS
     Route: 030
     Dates: start: 20060912
  9. FITOMENADION [Concomitant]
     Indication: PROPHYLAXIS
     Route: 048
     Dates: start: 20060911
  10. AMLODIPINE BESILATE [Concomitant]
     Indication: HYPERTENSION
     Dosage: UNK
     Route: 048
     Dates: start: 20060907
  11. VALSARTAN [Concomitant]
     Indication: HYPERTENSION
     Dosage: UNK
     Route: 048
     Dates: start: 20050729

REACTIONS (2)
  - DYSPHAGIA [None]
  - ECCHYMOSIS [None]
